FAERS Safety Report 9053755 (Version 3)
Quarter: 2013Q2

REPORT INFORMATION
  Report Type: Report from Study
  Country: CA (occurrence: CA)
  Receive Date: 20130208
  Receipt Date: 20130612
  Transmission Date: 20140414
  Serious: Yes (Other)
  Sender: FDA-Public Use
  Company Number: PHHY2013CA011704

PATIENT
  Age: 72 Year
  Sex: Female

DRUGS (9)
  1. ACLASTA [Suspect]
     Indication: OSTEOPOROSIS
     Dosage: 5 MG, 1 APPLICATION
     Route: 042
     Dates: start: 20130204
  2. LIPITOR [Concomitant]
  3. AVAPRO [Concomitant]
  4. INDAPAMIDE [Concomitant]
  5. NORVASC [Concomitant]
  6. PLAVIX [Concomitant]
  7. FLEXERIL [Concomitant]
  8. VITAMIN B 12 [Concomitant]
  9. CALCIUM + VIT D [Concomitant]

REACTIONS (7)
  - Choking sensation [Recovered/Resolved]
  - Hot flush [Recovered/Resolved]
  - Abdominal discomfort [Recovered/Resolved]
  - Hypoaesthesia oral [Recovered/Resolved]
  - Hypoaesthesia [Recovered/Resolved]
  - Dizziness [Recovered/Resolved]
  - Incorrect dose administered [Recovered/Resolved]
